FAERS Safety Report 14676206 (Version 1)
Quarter: 2018Q1

REPORT INFORMATION
  Report Type: Spontaneous
  Country: US (occurrence: US)
  Receive Date: 20180323
  Receipt Date: 20180323
  Transmission Date: 20180509
  Serious: Yes (Hospitalization)
  Sender: FDA-Public Use
  Company Number: US-ACTELION-A-US2018-169653

PATIENT
  Age: 69 Year
  Sex: Female
  Weight: 100.68 kg

DRUGS (4)
  1. VENTAVIS [Suspect]
     Active Substance: ILOPROST
     Indication: PULMONARY ARTERIAL HYPERTENSION
     Dosage: 5 MCG, 6-9 TIMES PER DAY
     Route: 055
  2. COUMADIN [Concomitant]
     Active Substance: WARFARIN SODIUM
  3. ADCIRCA [Concomitant]
     Active Substance: TADALAFIL
  4. LETAIRIS [Concomitant]
     Active Substance: AMBRISENTAN

REACTIONS (1)
  - International normalised ratio increased [Recovered/Resolved]
